FAERS Safety Report 8853461 (Version 2)
Quarter: 2013Q3

REPORT INFORMATION
  Report Type: Spontaneous
  Country: US (occurrence: US)
  Receive Date: 20121022
  Receipt Date: 20130805
  Transmission Date: 20140515
  Serious: Yes (Death)
  Sender: FDA-Public Use
  Company Number: US-ELI_LILLY_AND_COMPANY-US201210005750

PATIENT
  Sex: Male
  Weight: 63.04 kg

DRUGS (2)
  1. GEMZAR [Suspect]
     Indication: LUNG NEOPLASM
     Dosage: 1748 MG, UNKNOWN
     Route: 042
     Dates: start: 20111025
  2. ONDASETRON [Concomitant]

REACTIONS (1)
  - Malignant neoplasm progression [Fatal]
